FAERS Safety Report 24251233 (Version 1)
Quarter: 2024Q3

REPORT INFORMATION
  Report Type: Spontaneous
  Country: BR (occurrence: BR)
  Receive Date: 20240826
  Receipt Date: 20240826
  Transmission Date: 20241016
  Serious: Yes (Hospitalization, Other)
  Sender: DAIICHI
  Company Number: BR-DSJP-DSE-2024-141536

PATIENT
  Age: 47 Year
  Sex: Female

DRUGS (2)
  1. ENHERTU [Suspect]
     Active Substance: FAM-TRASTUZUMAB DERUXTECAN-NXKI
     Indication: Product used for unknown indication
     Dosage: UNK
     Route: 065
     Dates: start: 20230102, end: 20240225
  2. ENHERTU [Suspect]
     Active Substance: FAM-TRASTUZUMAB DERUXTECAN-NXKI
     Dosage: UNK (RESTARTED TDX-D ? 28-DAY CYCLES)
     Route: 065
     Dates: start: 20230911

REACTIONS (3)
  - Electrolyte imbalance [Unknown]
  - Vomiting [Unknown]
  - Disease progression [Unknown]
